FAERS Safety Report 6108092-9 (Version None)
Quarter: 2009Q1

REPORT INFORMATION
  Report Type: 
  Country: None (occurrence: None)
  Receive Date: 20090309
  Receipt Date: 20090302
  Transmission Date: 20090719
  Serious: Yes (Hospitalization)
  Sender: FDA-Public Use
  Company Number: US-ELI_LILLY_AND_COMPANY-US200903000340

PATIENT
  Sex: Female

DRUGS (17)
  1. HUMALOG [Suspect]
  2. ARIMIDEX [Concomitant]
  3. LANTUS [Concomitant]
  4. BYETTA [Concomitant]
  5. BUPROPION HCL [Concomitant]
  6. PREVACID [Concomitant]
  7. METOPROLOL [Concomitant]
  8. FLUOXETINE [Concomitant]
  9. PANGESTYME [Concomitant]
  10. GABAPENTIN [Concomitant]
  11. RANITIDINE [Concomitant]
  12. LYRICA [Concomitant]
  13. SANDOSTATIN [Concomitant]
  14. MULTI-VITAMIN [Concomitant]
  15. VITAMIN E [Concomitant]
  16. CALCIUM WITH VITAMIN D [Concomitant]
  17. TERBINAFINE HCL [Concomitant]

REACTIONS (3)
  - AMNESIA [None]
  - BREAST CANCER [None]
  - PANCREATIC CARCINOMA [None]
